FAERS Safety Report 16907682 (Version 2)
Quarter: 2020Q2

REPORT INFORMATION
  Report Type: Spontaneous
  Country: FR (occurrence: FR)
  Receive Date: 20191011
  Receipt Date: 20200619
  Transmission Date: 20200713
  Serious: Yes (Disabling, Congenital Anomaly, Other)
  Sender: FDA-Public Use
  Company Number: FR-AUROBINDO-AUR-APL-2019-065846

PATIENT
  Age: 37 Week
  Sex: Female
  Weight: 2.34 kg

DRUGS (11)
  1. PLAQUENIL [Suspect]
     Active Substance: HYDROXYCHLOROQUINE SULFATE
     Indication: SYSTEMIC LUPUS ERYTHEMATOSUS
     Dosage: UNK
     Route: 064
     Dates: start: 200511, end: 200608
  2. DIFFU-K [Concomitant]
     Active Substance: POTASSIUM CHLORIDE
     Indication: SYSTEMIC LUPUS ERYTHEMATOSUS
     Dosage: UNK
     Route: 064
     Dates: end: 200608
  3. SPECIAFOLDINE [Concomitant]
     Active Substance: FOLIC ACID
     Indication: PREGNANCY
     Dosage: UNK
     Route: 064
  4. KALEORID [Concomitant]
     Active Substance: POTASSIUM CHLORIDE
     Indication: SYSTEMIC LUPUS ERYTHEMATOSUS
     Dosage: UNK
     Route: 064
  5. ACTONEL [Concomitant]
     Active Substance: RISEDRONATE SODIUM
     Indication: SYSTEMIC LUPUS ERYTHEMATOSUS
     Dosage: UNK
     Route: 064
     Dates: end: 200608
  6. OROCAL D3 [Concomitant]
     Active Substance: CALCIUM CARBONATE\CHOLECALCIFEROL
     Indication: SYSTEMIC LUPUS ERYTHEMATOSUS
     Dosage: UNK
     Route: 064
     Dates: end: 200608
  7. KEPPRA [Suspect]
     Active Substance: LEVETIRACETAM
     Indication: EPILEPSY
     Dosage: 3000 MILLIGRAM, DAILY
     Route: 065
     Dates: start: 200507
  8. PARACETAMOL [Suspect]
     Active Substance: ACETAMINOPHEN
     Indication: SYSTEMIC LUPUS ERYTHEMATOSUS
     Dosage: UNK
     Route: 064
     Dates: start: 200511, end: 200608
  9. KEPPRA [Suspect]
     Active Substance: LEVETIRACETAM
     Dosage: UNK
     Route: 064
     Dates: start: 200511, end: 200608
  10. TRILEPTAL [Suspect]
     Active Substance: OXCARBAZEPINE
     Indication: EPILEPSY
     Dosage: UNK
     Route: 064
     Dates: start: 200511, end: 200608
  11. CORTANCYL [Concomitant]
     Active Substance: PREDNISONE
     Indication: SYSTEMIC LUPUS ERYTHEMATOSUS
     Dosage: UNK
     Route: 064
     Dates: start: 200511, end: 200608

REACTIONS (5)
  - Low birth weight baby [Unknown]
  - Dysmorphism [Not Recovered/Not Resolved]
  - Maternal exposure during pregnancy [Recovered/Resolved]
  - Chondropathy [Not Recovered/Not Resolved]
  - Chondrodystrophy [Not Recovered/Not Resolved]

NARRATIVE: CASE EVENT DATE: 200511
